FAERS Safety Report 14403209 (Version 2)
Quarter: 2018Q1

REPORT INFORMATION
  Report Type: Spontaneous
  Country: US (occurrence: US)
  Receive Date: 20180117
  Receipt Date: 20180222
  Transmission Date: 20180509
  Serious: Yes (Other)
  Sender: FDA-Public Use
  Company Number: US-BAUSCH-BL-2018-000627

PATIENT
  Sex: Male
  Weight: 74.91 kg

DRUGS (4)
  1. HIPREX [Concomitant]
     Active Substance: METHENAMINE HIPPURATE
     Indication: PRODUCT USED FOR UNKNOWN INDICATION
  2. ATIVAN [Suspect]
     Active Substance: LORAZEPAM
     Indication: ANXIETY
     Dosage: ABOUT ONE AND A HALF YEAR AGO
     Route: 048
     Dates: start: 2016
  3. SEROQUEL [Concomitant]
     Active Substance: QUETIAPINE FUMARATE
     Indication: PRODUCT USED FOR UNKNOWN INDICATION
  4. RYTARY [Concomitant]
     Active Substance: CARBIDOPA\LEVODOPA
     Indication: PARKINSON^S DISEASE

REACTIONS (1)
  - Proteinuria [Recovered/Resolved]
